FAERS Safety Report 7813982-2 (Version None)
Quarter: 2011Q4

REPORT INFORMATION
  Report Type: 
  Country: None (occurrence: None)
  Receive Date: 20111014
  Receipt Date: 20111005
  Transmission Date: 20120403
  Serious: Yes (Other)
  Sender: FDA-Public Use
  Company Number: US-BAYER-2011-095722

PATIENT
  Age: 30 Year
  Sex: Female

DRUGS (1)
  1. MIRENA [Suspect]
     Indication: CONTRACEPTION
     Dosage: 20 MCG/24HR, UNK
     Route: 015
     Dates: start: 20081212, end: 20090701

REACTIONS (4)
  - VAGINAL HAEMORRHAGE [None]
  - COMPLICATION OF PREGNANCY [None]
  - ABDOMINAL PAIN [None]
  - ENDOMETRITIS [None]
